FAERS Safety Report 6425620-4 (Version None)
Quarter: 2009Q4

REPORT INFORMATION
  Report Type: 
  Country: None (occurrence: None)
  Receive Date: 20091016
  Receipt Date: 20080905
  Transmission Date: 20100525
  Serious: Yes (Hospitalization)
  Sender: FDA-Public Use
  Company Number: A03200803534

PATIENT
  Sex: Female

DRUGS (3)
  1. ELOXATIN [Suspect]
     Dosage: INTRAVENOUS NOS
     Route: 042
  2. FLUOROURACIL [Suspect]
     Dosage: INTRAVENOUS NOS
     Route: 042
  3. LEUCOVORIN CALCIUM [Suspect]
     Dosage: INTRAVENOUS NOS
     Route: 042

REACTIONS (2)
  - BLOOD CREATININE INCREASED [None]
  - GASTROENTERITIS [None]
